FAERS Safety Report 24114620 (Version 1)
Quarter: 2024Q3

REPORT INFORMATION
  Report Type: Spontaneous
  Country: CN (occurrence: CN)
  Receive Date: 20240720
  Receipt Date: 20240720
  Transmission Date: 20241016
  Serious: Yes (Other)
  Sender: ROCHE
  Company Number: CN-ROCHE-10000019581

PATIENT
  Age: 73 Year
  Sex: Male

DRUGS (2)
  1. FARICIMAB [Suspect]
     Active Substance: FARICIMAB
     Indication: Polypoidal choroidal vasculopathy
     Route: 065
  2. FARICIMAB [Suspect]
     Active Substance: FARICIMAB
     Indication: Choroidal neovascularisation

REACTIONS (11)
  - Eye pain [Unknown]
  - Visual acuity reduced [Recovering/Resolving]
  - Corneal oedema [Unknown]
  - Anterior chamber cell [Unknown]
  - Hypopyon [Recovering/Resolving]
  - Vitreous opacities [Unknown]
  - Endophthalmitis [Recovered/Resolved]
  - Retinal haemorrhage [Unknown]
  - Subretinal fluid [Unknown]
  - Vitritis [Unknown]
  - Off label use [Unknown]
